FAERS Safety Report 4861758-0 (Version None)
Quarter: 2005Q4

REPORT INFORMATION
  Report Type: 
  Country: None (occurrence: None)
  Receive Date: 20051220
  Receipt Date: 20051005
  Transmission Date: 20060501
  Serious: Yes (Life-Threatening, Hospitalization)
  Sender: FDA-Public Use
  Company Number: US-MERCK-0510USA05499

PATIENT
  Age: 62 Year
  Sex: Female
  Weight: 82 kg

DRUGS (9)
  1. VIOXX [Suspect]
     Indication: ARTHRITIS
     Route: 048
     Dates: start: 19980101, end: 20040901
  2. PREMARIN [Concomitant]
     Route: 048
  3. ALLEGRA [Concomitant]
     Route: 065
  4. PREVACID [Concomitant]
     Route: 048
  5. SPIRONOLACTONE [Concomitant]
     Route: 048
  6. ATENOLOL [Concomitant]
     Route: 048
  7. DIOVAN [Concomitant]
     Route: 048
  8. NORVASC [Concomitant]
     Route: 048
  9. LORATADINE [Concomitant]
     Route: 048

REACTIONS (18)
  - ACUTE RESPIRATORY FAILURE [None]
  - ARTHROPATHY [None]
  - DEEP VEIN THROMBOSIS [None]
  - DIVERTICULITIS [None]
  - DYSPNOEA [None]
  - HEPATIC CYST [None]
  - HYPERTENSION [None]
  - PEPTIC ULCER [None]
  - PNEUMONIA [None]
  - PULMONARY EMBOLISM [None]
  - SINUSITIS [None]
  - SPINAL OSTEOARTHRITIS [None]
  - SQUAMOUS CELL CARCINOMA [None]
  - TACHYCARDIA [None]
  - THYROID ADENOMA [None]
  - TRICUSPID VALVE INCOMPETENCE [None]
  - URINARY TRACT INFECTION [None]
  - UTERINE DISORDER [None]
